FAERS Safety Report 25762674 (Version 1)
Quarter: 2025Q3

REPORT INFORMATION
  Report Type: Spontaneous
  Country: US (occurrence: US)
  Receive Date: 20250904
  Receipt Date: 20250904
  Transmission Date: 20251020
  Serious: No
  Sender: JOHNSON AND JOHNSON
  Company Number: US-JNJFOC-20250835889

PATIENT
  Age: 81 Year

DRUGS (1)
  1. ELMIRON [Suspect]
     Active Substance: PENTOSAN POLYSULFATE SODIUM
     Indication: Product used for unknown indication
     Dates: start: 20250801

REACTIONS (7)
  - Headache [Unknown]
  - Fatigue [Unknown]
  - Gastrointestinal disorder [Unknown]
  - Diarrhoea [Unknown]
  - Dyspepsia [Unknown]
  - Head discomfort [Unknown]
  - Tongue coated [Unknown]

NARRATIVE: CASE EVENT DATE: 20250801
